FAERS Safety Report 25310945 (Version 1)
Quarter: 2025Q2

REPORT INFORMATION
  Report Type: Spontaneous
  Country: US (occurrence: None)
  Receive Date: 20250514
  Receipt Date: 20250514
  Transmission Date: 20250717
  Serious: No
  Sender: UNICHEM
  Company Number: US-Unichem Pharmaceuticals (USA) Inc-UCM202408-001084

PATIENT
  Sex: Male

DRUGS (4)
  1. CYCLOBENZAPRINE HYDROCHLORIDE [Suspect]
     Active Substance: CYCLOBENZAPRINE HYDROCHLORIDE
     Indication: Rotator cuff syndrome
     Dates: start: 202404
  2. TRAZODONE [Concomitant]
     Active Substance: TRAZODONE HYDROCHLORIDE
     Indication: Product used for unknown indication
  3. Senobriate [Concomitant]
     Indication: Product used for unknown indication
  4. Ozympic [Concomitant]
     Indication: Product used for unknown indication

REACTIONS (1)
  - False positive investigation result [Unknown]
